FAERS Safety Report 4534598-X (Version None)
Quarter: 2004Q4

REPORT INFORMATION
  Report Type: 
  Country: None (occurrence: None)
  Receive Date: 20041214
  Receipt Date: 20041103
  Transmission Date: 20050328
  Serious: Yes (Other)
  Sender: FDA-Public Use
  Company Number: 2004242979US

PATIENT
  Age: 48 Year
  Sex: Male

DRUGS (3)
  1. BEXTRA [Suspect]
     Dosage: 20 MG, QD, ORAL
     Route: 048
     Dates: start: 20041007
  2. INDERAL [Concomitant]
  3. QUINIDINE SULFATE [Concomitant]

REACTIONS (1)
  - CARDIAC FAILURE CONGESTIVE [None]
